FAERS Safety Report 6695306-X (Version None)
Quarter: 2010Q2

REPORT INFORMATION
  Report Type: 
  Country: None (occurrence: None)
  Receive Date: 20100423
  Receipt Date: 20100415
  Transmission Date: 20101027
  Serious: Yes (Other)
  Sender: FDA-Public Use
  Company Number: US-ABBOTT-10P-163-0638788-00

PATIENT
  Sex: Female
  Weight: 99.88 kg

DRUGS (7)
  1. HUMIRA [Suspect]
     Indication: RHEUMATOID ARTHRITIS
     Dates: start: 20050101, end: 20080101
  2. HUMIRA [Suspect]
     Dates: start: 20100201
  3. METHOTREXATE [Suspect]
     Indication: RHEUMATOID ARTHRITIS
     Dates: start: 20050101, end: 20080101
  4. LIPITOR [Concomitant]
     Indication: BLOOD CHOLESTEROL INCREASED
  5. ZEBETA [Concomitant]
     Indication: BLOOD CHOLESTEROL INCREASED
  6. DIOVAN [Concomitant]
     Indication: HYPERTENSION
  7. CELEBREX [Concomitant]
     Indication: PAIN

REACTIONS (2)
  - HEPATIC FAILURE [None]
  - HYPERTENSION [None]
